APPROVED DRUG PRODUCT: TIMOPTIC-XE
Active Ingredient: TIMOLOL MALEATE
Strength: EQ 0.25% BASE
Dosage Form/Route: SOLUTION, GEL FORMING/DROPS;OPHTHALMIC
Application: N020330 | Product #001 | TE Code: AB
Applicant: BAUSCH AND LOMB INC
Approved: Nov 4, 1993 | RLD: Yes | RS: No | Type: RX